FAERS Safety Report 15358254 (Version 1)
Quarter: 2018Q3

REPORT INFORMATION
  Report Type: Spontaneous
  Country: TW (occurrence: TW)
  Receive Date: 20180906
  Receipt Date: 20180906
  Transmission Date: 20181010
  Serious: Yes (Other)
  Sender: FDA-Public Use
  Company Number: TW-GILEAD-2018-0361222

PATIENT
  Age: 56 Year
  Sex: Male

DRUGS (1)
  1. HEPSERA [Suspect]
     Active Substance: ADEFOVIR DIPIVOXIL
     Indication: HEPATITIS B
     Dosage: 10 MG, UNK
     Route: 065

REACTIONS (5)
  - Weight decreased [Recovering/Resolving]
  - Multiple fractures [Recovering/Resolving]
  - Pain [Recovering/Resolving]
  - Osteomalacia [Recovering/Resolving]
  - Blood phosphorus decreased [Recovering/Resolving]
